FAERS Safety Report 9062128 (Version 1)
Quarter: 2013Q1

REPORT INFORMATION
  Report Type: Spontaneous
  Country: None (occurrence: US)
  Receive Date: 20130127
  Receipt Date: 20130127
  Transmission Date: 20140127
  Serious: No
  Sender: FDA-Public Use
  Company Number: US-ALLERGAN-1205105US

PATIENT
  Sex: Female

DRUGS (3)
  1. PRED FORTE [Suspect]
     Indication: CATARACT OPERATION
  2. NEVANAC [Concomitant]
  3. VIGAMOX [Concomitant]

REACTIONS (2)
  - Erythema [Recovered/Resolved]
  - Pruritus [Recovered/Resolved]
